FAERS Safety Report 5007926-9 (Version None)
Quarter: 2006Q2

REPORT INFORMATION
  Report Type: 
  Country: None (occurrence: None)
  Receive Date: 20060518
  Receipt Date: 20060511
  Transmission Date: 20061013
  Serious: No
  Sender: FDA-Public Use
  Company Number: 06H-124-0308118-00

PATIENT
  Age: 27 Year
  Sex: Female

DRUGS (3)
  1. METRONIDAZOLE [Suspect]
     Indication: POSTOPERATIVE CARE
     Dosage: 500  MG, 3 IN 1 D, INTRAVENOUS
     Route: 042
  2. METRONIDAZOLE [Suspect]
     Indication: PROPHYLAXIS
     Dosage: 500  MG, 3 IN 1 D, INTRAVENOUS
     Route: 042
  3. VELOSEF (VELOSEF INJECTION) [Concomitant]

REACTIONS (4)
  - CHILLS [None]
  - CYANOSIS [None]
  - HYPERHIDROSIS [None]
  - HYPOTENSION [None]
